FAERS Safety Report 16065096 (Version 1)
Quarter: 2019Q1

REPORT INFORMATION
  Report Type: Spontaneous
  Country: DE (occurrence: DE)
  Receive Date: 20190313
  Receipt Date: 20190313
  Transmission Date: 20190418
  Serious: Yes (Other)
  Sender: FDA-Public Use
  Company Number: DE-BEH-2019100095

PATIENT
  Sex: Female

DRUGS (1)
  1. HIZENTRA [Suspect]
     Active Substance: HUMAN IMMUNOGLOBULIN G
     Indication: POST VIRAL FATIGUE SYNDROME
     Dosage: 1 G, TIW
     Route: 058

REACTIONS (5)
  - Coordination abnormal [Unknown]
  - Post viral fatigue syndrome [Unknown]
  - Dizziness [Unknown]
  - Restlessness [Unknown]
  - Influenza like illness [Unknown]
